FAERS Safety Report 8960433 (Version 2)
Quarter: 2012Q4

REPORT INFORMATION
  Report Type: 
  Country: GB (occurrence: GB)
  Receive Date: 20121211
  Receipt Date: 20121228
  Transmission Date: 20130627
  Serious: Yes (Hospitalization, Other)
  Sender: FDA-Public Use
  Company Number: GB-PFIZER INC-GBWYE895512JUL04

PATIENT
  Age: 73 Year

DRUGS (7)
  1. IBUPROFEN [Suspect]
     Indication: ARTHRITIS NOS
     Dosage: 400.0 mg, 1x/day, NIGHTLY
     Route: 048
     Dates: start: 200406
  2. AMLODIPINE [Concomitant]
     Dosage: 5 mg, daily
     Route: 048
  3. BISOPROLOL [Concomitant]
     Dosage: 5 MG, FREQUENCY UNSPECIFIED
     Route: 048
  4. IRON [Concomitant]
     Dosage: 200 MG DAILY
     Route: 048
  5. RAMIPRIL [Concomitant]
     Dosage: 10 mg, UNK
     Route: 048
  6. SIMVASTATIN [Concomitant]
     Dosage: 40 mg, UNK
     Route: 048
  7. FERROUS SULFATE [Concomitant]
     Dosage: UNK
     Route: 048

REACTIONS (5)
  - Upper gastrointestinal haemorrhage [Recovering/Resolving]
  - Anaemia [Recovering/Resolving]
  - Condition aggravated [Recovered/Resolved]
  - Oesophagitis [Unknown]
  - Duodenitis [Unknown]
